FAERS Safety Report 7589517-9 (Version None)
Quarter: 2011Q3

REPORT INFORMATION
  Report Type: 
  Country: None (occurrence: None)
  Receive Date: 20110705
  Receipt Date: 20110628
  Transmission Date: 20111222
  Serious: Yes (Other)
  Sender: FDA-Public Use
  Company Number: CZ-ROCHE-786008

PATIENT
  Sex: Female

DRUGS (2)
  1. BONIVA [Suspect]
     Route: 042
  2. BONIVA [Suspect]
     Indication: OSTEOPOROSIS POSTMENOPAUSAL
     Route: 048

REACTIONS (2)
  - GASTROINTESTINAL DISORDER [None]
  - OSTEONECROSIS OF JAW [None]
